FAERS Safety Report 7170767-0 (Version None)
Quarter: 2010Q4

REPORT INFORMATION
  Report Type: 
  Country: None (occurrence: None)
  Receive Date: 20101203
  Receipt Date: 20101126
  Transmission Date: 20110411
  Serious: Yes (Death, Life-Threatening, Other)
  Sender: FDA-Public Use
  Company Number: 2009JP005098

PATIENT
  Age: 64 Year
  Sex: Male
  Weight: 62 kg

DRUGS (11)
  1. TACROLIMUS [Suspect]
     Indication: LUPUS NEPHRITIS
     Dosage: 3 MG, UNKNOWN/D, ORAL
     Route: 048
     Dates: start: 20070711, end: 20090917
  2. PREDNISOLONE [Concomitant]
  3. LANSOPRAZOLE [Concomitant]
  4. DIOVAN [Concomitant]
  5. ASPIRIN [Concomitant]
  6. ALLOPURINOL [Concomitant]
  7. LIVALO (ITAVASTATIN CALCIUM) [Concomitant]
  8. ACTONEL [Concomitant]
  9. ATELEC (CILNIDIPINE) [Concomitant]
  10. NAVELBINE [Concomitant]
  11. TAXOTERE [Concomitant]

REACTIONS (3)
  - DIVERTICULITIS [None]
  - LARGE INTESTINE PERFORATION [None]
  - LUNG ADENOCARCINOMA [None]
